FAERS Safety Report 8165021-4 (Version None)
Quarter: 2012Q1

REPORT INFORMATION
  Report Type: 
  Country: None (occurrence: None)
  Receive Date: 20120227
  Receipt Date: 20120214
  Transmission Date: 20120608
  Serious: No
  Sender: FDA-Public Use
  Company Number: US-BIOGENIDEC-2012BI006019

PATIENT
  Age: 41 Year
  Sex: Female

DRUGS (3)
  1. AVONEX [Suspect]
     Route: 030
     Dates: start: 20120101
  2. AVONEX [Suspect]
     Indication: MULTIPLE SCLEROSIS
     Route: 030
     Dates: start: 20120116
  3. AVONEX [Suspect]
     Route: 030
     Dates: start: 20120213

REACTIONS (4)
  - HYPOAESTHESIA [None]
  - MUSCULOSKELETAL DISORDER [None]
  - PYREXIA [None]
  - INFLUENZA LIKE ILLNESS [None]
